FAERS Safety Report 9500611 (Version 1)
Quarter: 2013Q3

REPORT INFORMATION
  Report Type: Spontaneous
  Country: US (occurrence: None)
  Receive Date: 20130904
  Receipt Date: 20130904
  Transmission Date: 20140515
  Serious: Yes (Other)
  Sender: FDA-Public Use
  Company Number: None

PATIENT
  Age: 68 Year
  Sex: Female
  Weight: 58.06 kg

DRUGS (9)
  1. DEFINITY [Suspect]
     Indication: SCAN WITH CONTRAST
     Dosage: GIVEN ONCE FOR PRE-STRESS ECHO IMAGES
     Route: 042
     Dates: start: 20130828
  2. ACEBUTOLOL [Concomitant]
  3. NORVASC [Concomitant]
  4. LIPITOR [Concomitant]
  5. ASPIRIN [Concomitant]
  6. CO-ENZYME Q-10 [Concomitant]
  7. VITAMIN B12 [Concomitant]
  8. FOLIC ACID [Concomitant]
  9. MAG-OX [Concomitant]

REACTIONS (2)
  - Back pain [None]
  - Muscle spasms [None]
